FAERS Safety Report 9826871 (Version 2)
Quarter: 2014Q1

REPORT INFORMATION
  Report Type: Report from Study
  Country: IT (occurrence: IT)
  Receive Date: 20140117
  Receipt Date: 20140204
  Transmission Date: 20141002
  Serious: Yes (Hospitalization)
  Sender: FDA-Public Use
  Company Number: IT-PFIZER INC-2014007359

PATIENT
  Age: 64 Year
  Sex: Male
  Weight: 94 kg

DRUGS (5)
  1. SUTENT [Suspect]
     Indication: RENAL CANCER
     Dosage: 37.5 MG, 1X/DAY (4 WEEK ON, 2 WEEK OFF)
     Route: 048
     Dates: start: 20131125, end: 20131225
  2. PANTOPRAZOLE [Concomitant]
     Indication: GASTRIC ULCER
     Dosage: 20 MG, 2X/DAY
     Route: 048
     Dates: start: 201203
  3. LEVOTHYROXINE [Concomitant]
     Indication: HYPOTHYROIDISM
     Dosage: 75 UG, 1X/DAY
     Route: 048
     Dates: start: 20130902
  4. ENALAPRIL [Concomitant]
     Indication: HYPERTENSION
     Dosage: 20 MG, 1X/DAY
     Route: 048
     Dates: start: 20130902
  5. MEGACE [Concomitant]
     Indication: ASTHENIA
     Dosage: 160 MG, 2X/DAY
     Route: 048
     Dates: start: 20130528

REACTIONS (1)
  - Ascites [Unknown]
